FAERS Safety Report 15357234 (Version 2)
Quarter: 2018Q3

REPORT INFORMATION
  Report Type: Spontaneous
  Country: CO (occurrence: CO)
  Receive Date: 20180906
  Receipt Date: 20180927
  Transmission Date: 20181010
  Serious: Yes (Hospitalization)
  Sender: FDA-Public Use
  Company Number: CO-BIOMARINAP-CO-2018-119720

PATIENT
  Age: 4 Year
  Sex: Male

DRUGS (1)
  1. VIMIZIM [Suspect]
     Active Substance: ELOSULFASE ALFA
     Indication: PRODUCT USED FOR UNKNOWN INDICATION
     Dosage: 25 MILLIGRAM
     Route: 042
     Dates: start: 20180213

REACTIONS (3)
  - Adenovirus infection [Recovering/Resolving]
  - Pyrexia [Recovering/Resolving]
  - Ear pain [Unknown]

NARRATIVE: CASE EVENT DATE: 20180831
